FAERS Safety Report 6815795-7 (Version None)
Quarter: 2010Q3

REPORT INFORMATION
  Report Type: 
  Country: None (occurrence: None)
  Receive Date: 20100705
  Receipt Date: 20100628
  Transmission Date: 20110219
  Serious: Yes (Other)
  Sender: FDA-Public Use
  Company Number: US-MERCK-1006USA04226

PATIENT
  Age: 6 Year
  Sex: Female
  Weight: 23 kg

DRUGS (3)
  1. SINGULAIR [Suspect]
     Indication: RHINITIS ALLERGIC
     Route: 048
  2. SINGULAIR [Suspect]
     Indication: ECZEMA
     Route: 048
  3. ZYRTEC [Concomitant]
     Route: 065

REACTIONS (3)
  - BRUXISM [None]
  - NIGHTMARE [None]
  - OFF LABEL USE [None]
